FAERS Safety Report 10072872 (Version 3)
Quarter: 2014Q2

REPORT INFORMATION
  Report Type: Spontaneous
  Country: US (occurrence: US)
  Receive Date: 20140411
  Receipt Date: 20140613
  Transmission Date: 20141212
  Serious: No
  Sender: FDA-Public Use
  Company Number: US-PFIZER INC-2014102363

PATIENT
  Age: 53 Year
  Sex: Female
  Weight: 60.3 kg

DRUGS (1)
  1. PREMARIN [Suspect]
     Indication: HORMONE REPLACEMENT THERAPY
     Dosage: 0.065 MG, DAILY
     Route: 048
     Dates: start: 1987

REACTIONS (1)
  - Thyroid disorder [Not Recovered/Not Resolved]
